FAERS Safety Report 4624902-6 (Version None)
Quarter: 2005Q2

REPORT INFORMATION
  Report Type: 
  Country: None (occurrence: None)
  Receive Date: 20050401
  Receipt Date: 20050324
  Transmission Date: 20051028
  Serious: Yes (Death)
  Sender: FDA-Public Use
  Company Number: US-JNJFOC-20050306392

PATIENT
  Age: 50 Year
  Sex: Male

DRUGS (1)
  1. DURAGESIC-100 [Suspect]
     Route: 062
     Dates: end: 20031230

REACTIONS (2)
  - HYPERTENSION [None]
  - STRESS [None]
